FAERS Safety Report 9513994 (Version 1)
Quarter: 2013Q3

REPORT INFORMATION
  Report Type: Spontaneous
  Country: US (occurrence: US)
  Receive Date: 20130910
  Receipt Date: 20130910
  Transmission Date: 20140515
  Serious: No
  Sender: FDA-Public Use
  Company Number: US-JHP PHARMACEUTICALS, LLC-JHP201200500

PATIENT
  Sex: Female

DRUGS (1)
  1. BREVITAL SODIUM FOR INJECTION [Suspect]
     Indication: INDUCTION OF ANAESTHESIA
     Dosage: 80 MG, (8CC OF 1% SOLUTION IN NS)
     Route: 042
     Dates: start: 20121022, end: 20121022

REACTIONS (1)
  - Infusion site extravasation [Not Recovered/Not Resolved]
